FAERS Safety Report 15242457 (Version 1)
Quarter: 2018Q3

REPORT INFORMATION
  Report Type: Spontaneous
  Country: US (occurrence: US)
  Receive Date: 20180806
  Receipt Date: 20180806
  Transmission Date: 20181010
  Serious: Yes (Hospitalization, Other)
  Sender: FDA-Public Use
  Company Number: US-ACI HEALTHCARE LIMITED-2053260

PATIENT
  Age: 33 Year
  Sex: Male

DRUGS (2)
  1. GABAPENTIN. [Suspect]
     Active Substance: GABAPENTIN
     Route: 065
  2. HEROIN [Suspect]
     Active Substance: DIAMORPHINE
     Route: 065

REACTIONS (5)
  - Drug interaction [Unknown]
  - Bradypnoea [Recovered/Resolved]
  - Pulmonary oedema [Unknown]
  - Depressed level of consciousness [Unknown]
  - Hypoxia [Recovered/Resolved]
